FAERS Safety Report 11243427 (Version 1)
Quarter: 2015Q3

REPORT INFORMATION
  Report Type: Spontaneous
  Country: US (occurrence: None)
  Receive Date: 20150702
  Receipt Date: 20150702
  Transmission Date: 20151125
  Serious: Yes (Other)
  Sender: FDA-Public Use
  Company Number: None

PATIENT
  Age: 10 Year
  Weight: 51.5 kg

DRUGS (2)
  1. ONE A DAY MVI [Concomitant]
  2. NOSPIN [Suspect]
     Active Substance: NOSCAPINE
     Indication: PRADER-WILLI SYNDROME
     Dosage: 1 DOSE
     Route: 058
     Dates: start: 20150606

REACTIONS (3)
  - Injection site warmth [None]
  - Injection site erythema [None]
  - Urticaria [None]

NARRATIVE: CASE EVENT DATE: 20150607
